FAERS Safety Report 6321404-6 (Version None)
Quarter: 2009Q3

REPORT INFORMATION
  Report Type: 
  Country: None (occurrence: None)
  Receive Date: 20090822
  Receipt Date: 20090228
  Transmission Date: 20100115
  Serious: No
  Sender: FDA-Public Use
  Company Number: US-ABBOTT-09P-163-0498724-00

PATIENT
  Sex: Male

DRUGS (5)
  1. NIASPAN [Suspect]
     Indication: BLOOD CHOLESTEROL INCREASED
     Dosage: 500 MG PO DAILY AT BEDTIME
     Route: 048
     Dates: start: 20090114
  2. NIASPAN [Suspect]
     Indication: BLOOD CHOLESTEROL ABNORMAL
     Dosage: 1000MG EVERY NIGHT
     Route: 048
     Dates: start: 20090201, end: 20090226
  3. AVODART [Concomitant]
     Indication: DRUG USE FOR UNKNOWN INDICATION
     Dosage: DAILY
     Route: 048
  4. TOPROL-XL [Concomitant]
     Indication: DRUG USE FOR UNKNOWN INDICATION
     Dosage: DAILY
     Route: 048
  5. ASPIRIN [Concomitant]
     Indication: DRUG USE FOR UNKNOWN INDICATION
     Dosage: DAILY
     Route: 048

REACTIONS (10)
  - ARTHRALGIA [None]
  - ATRIAL FIBRILLATION [None]
  - CHILLS [None]
  - DIARRHOEA [None]
  - FEELING HOT [None]
  - FLUSHING [None]
  - GASTRIC DISORDER [None]
  - HEART RATE INCREASED [None]
  - PAIN [None]
  - SKIN BURNING SENSATION [None]
